FAERS Safety Report 4867671-7 (Version None)
Quarter: 2005Q4

REPORT INFORMATION
  Report Type: 
  Country: None (occurrence: None)
  Receive Date: 20051222
  Receipt Date: 20020413
  Transmission Date: 20060501
  Serious: Yes (Death, Hospitalization)
  Sender: FDA-Public Use
  Company Number: 8-98310-005X

PATIENT
  Age: 24 Year
  Sex: Female

DRUGS (2)
  1. MYLOTARG [Suspect]
     Indication: ACUTE MYELOID LEUKAEMIA
     Dosage: 9 MG/M(2), INTRAVENOUS
     Route: 042
     Dates: start: 19981021, end: 19981021
  2. ABELCET [Concomitant]

REACTIONS (36)
  - ABDOMINAL DISTENSION [None]
  - ACIDOSIS [None]
  - ANAEMIA [None]
  - ASCITES [None]
  - BOWEL SOUNDS ABNORMAL [None]
  - CHILLS [None]
  - CONFUSIONAL STATE [None]
  - CYANOSIS [None]
  - DIALYSIS [None]
  - DIZZINESS [None]
  - FACE OEDEMA [None]
  - GENERALISED OEDEMA [None]
  - HYPERKALAEMIA [None]
  - HYPOTENSION [None]
  - HYPOXIA [None]
  - INJECTION SITE HAEMORRHAGE [None]
  - ISCHAEMIC HEPATITIS [None]
  - LUNG CONSOLIDATION [None]
  - MASS [None]
  - MULTI-ORGAN FAILURE [None]
  - OLIGURIA [None]
  - PLEURAL EFFUSION [None]
  - PNEUMONIA [None]
  - POST PROCEDURAL COMPLICATION [None]
  - PUPIL FIXED [None]
  - RENAL FAILURE ACUTE [None]
  - RETROPERITONEAL HAEMORRHAGE [None]
  - RETROPERITONEAL NEOPLASM [None]
  - SCLERAL DISORDER [None]
  - SEPSIS [None]
  - STUPOR [None]
  - THROMBOCYTOPENIA [None]
  - THROMBOSIS [None]
  - VAGINAL HAEMORRHAGE [None]
  - WEIGHT INCREASED [None]
  - WHITE BLOOD CELL COUNT DECREASED [None]
